FAERS Safety Report 20430682 (Version 1)
Quarter: 2022Q1

REPORT INFORMATION
  Report Type: Report from Study
  Country: US (occurrence: US)
  Receive Date: 20220204
  Receipt Date: 20220204
  Transmission Date: 20220424
  Serious: Yes (Hospitalization)
  Sender: FDA-Public Use
  Company Number: US-SERVIER-S21000579

PATIENT

DRUGS (45)
  1. PEGASPARGASE [Suspect]
     Active Substance: PEGASPARGASE
     Indication: Acute lymphocytic leukaemia
     Dosage: 2500 IU/M2, ONE DOSE
     Route: 042
     Dates: start: 20201125
  2. DEXAMETHASONE [Suspect]
     Active Substance: DEXAMETHASONE
     Indication: Acute lymphocytic leukaemia
     Dosage: 6 MG/M2, QD
     Route: 042
     Dates: start: 20201120, end: 20201220
  3. VINCRISTINE SULFATE [Suspect]
     Active Substance: VINCRISTINE SULFATE
     Indication: Acute lymphocytic leukaemia
     Dosage: 1.5 MG/M2, QD
     Route: 042
     Dates: start: 20201123, end: 20201229
  4. DOXORUBICIN HYDROCHLORIDE [Suspect]
     Active Substance: DOXORUBICIN HYDROCHLORIDE
     Indication: Acute lymphocytic leukaemia
     Dosage: 30 MG/M2, QD
     Route: 042
     Dates: start: 20201123, end: 20201124
  5. DEXRAZOXANE [Suspect]
     Active Substance: DEXRAZOXANE
     Indication: Acute lymphocytic leukaemia
     Dosage: 300 MG/M2, QD
     Route: 042
     Dates: start: 20201123, end: 20201124
  6. METHOTREXATE [Suspect]
     Active Substance: METHOTREXATE
     Indication: Acute lymphocytic leukaemia
     Dosage: 12 MG, ONE DOSE
     Route: 037
     Dates: start: 20201214, end: 20201214
  7. CYTARABINE [Suspect]
     Active Substance: CYTARABINE
     Indication: Acute lymphocytic leukaemia
     Dosage: 30 MG, ONE DOSE
     Route: 037
     Dates: start: 20201214, end: 20201214
  8. HYDROCORTISONE SODIUM SUCCINATE [Suspect]
     Active Substance: HYDROCORTISONE SODIUM SUCCINATE
     Indication: Acute lymphocytic leukaemia
     Dosage: 15 MG, ONE DOSE
     Route: 037
     Dates: start: 20201214, end: 20201214
  9. BACTRIM [Concomitant]
     Active Substance: SULFAMETHOXAZOLE\TRIMETHOPRIM
     Indication: Product used for unknown indication
     Dosage: 800 MG, QD
     Route: 048
  10. BACTRIM [Concomitant]
     Active Substance: SULFAMETHOXAZOLE\TRIMETHOPRIM
     Dosage: 160 MG, QD
     Route: 048
  11. TN UNSPECIFIED [Concomitant]
     Indication: Hypertension
     Dosage: 0.1 MG, QD
     Route: 048
  12. TN UNSPECIFIED [Concomitant]
     Indication: Product used for unknown indication
     Dosage: 5 MG, QD
     Route: 048
  13. TN UNSPECIFIED [Concomitant]
     Indication: Product used for unknown indication
     Dosage: 1 MG/ML, ONE DOSE
     Route: 030
  14. TN UNSPECIFIED [Concomitant]
     Indication: Product used for unknown indication
     Dosage: 15 MG, QD
     Route: 048
  15. TN UNSPECIFIED [Concomitant]
     Dosage: 15 MG, Q6H
     Route: 048
  16. TN UNSPECIFIED [Concomitant]
     Indication: Product used for unknown indication
     Dosage: 25 MG, Q6H
     Route: 042
  17. TN UNSPECIFIED [Concomitant]
     Indication: Product used for unknown indication
     Dosage: 0.5 MG, ONE HOUR PRIOR TO EXAM
  18. TN UNSPECIFIED [Concomitant]
     Indication: Product used for unknown indication
     Dosage: 20 MG, BID
     Route: 048
  19. TN UNSPECIFIED [Concomitant]
     Indication: Product used for unknown indication
     Dosage: 17 MG, QD
     Route: 048
  20. TN UNSPECIFIED [Concomitant]
     Indication: Product used for unknown indication
     Dosage: 8.6 MG, BID
     Route: 048
  21. TN UNSPECIFIED [Concomitant]
     Indication: Product used for unknown indication
     Dosage: 125 MG, ONE DOSE
     Route: 042
  22. TN UNSPECIFIED [Concomitant]
     Indication: Product used for unknown indication
     Dosage: 0.5 ML, ONE DOSE
     Route: 030
  23. TN UNSPECIFIED [Concomitant]
     Indication: Product used for unknown indication
     Dosage: 1000 ML, OTHER
     Route: 042
  24. TN UNSPECIFIED [Concomitant]
     Indication: Product used for unknown indication
     Dosage: 400 MG, BID
     Route: 048
  25. TN UNSPECIFIED [Concomitant]
     Indication: Product used for unknown indication
     Dosage: 500 MG, BID
     Route: 037
  26. TN UNSPECIFIED [Concomitant]
     Indication: Product used for unknown indication
     Dosage: 200 IU, BID
     Route: 048
  27. VITAMIN B COMPLEX [Concomitant]
     Active Substance: CYANOCOBALAMIN\DEXPANTHENOL\NIACINAMIDE\PYRIDOXINE HYDROCHLORIDE\RIBOFLAVIN 5^-PHOSPHATE SODIUM\THIA
     Indication: Product used for unknown indication
     Dosage: 1 DF, BID
     Route: 048
  28. TN UNSPECIFIED [Concomitant]
     Indication: Product used for unknown indication
     Dosage: 50 MG, QD
     Route: 048
  29. TN UNSPECIFIED [Concomitant]
     Indication: Product used for unknown indication
     Dosage: 1 MG, QD
     Route: 048
  30. TN UNSPECIFIED [Concomitant]
     Indication: Product used for unknown indication
     Dosage: UNK
     Route: 048
  31. TN UNSPECIFIED [Concomitant]
     Indication: Product used for unknown indication
     Dosage: 50 MG, ONE DOSE
     Route: 042
  32. TN UNSPECIFIED [Concomitant]
     Indication: Product used for unknown indication
     Dosage: 1 DF, QID
     Route: 054
  33. TN UNSPECIFIED [Concomitant]
     Indication: Product used for unknown indication
     Dosage: UNK
  34. TN UNSPECIFIED [Concomitant]
     Indication: Product used for unknown indication
     Dosage: UNK
     Route: 061
  35. TN UNSPECIFIED [Concomitant]
     Dosage: UNK
     Route: 061
  36. TN UNSPECIFIED [Concomitant]
     Indication: Product used for unknown indication
     Dosage: 30 ML, OTHER
  37. TN UNSPECIFIED [Concomitant]
     Indication: Product used for unknown indication
     Dosage: 400 MG, Q36H
     Route: 042
  38. TN UNSPECIFIED [Concomitant]
     Indication: Product used for unknown indication
     Dosage: 100 MG, QD
     Route: 048
  39. TN UNSPECIFIED [Concomitant]
     Indication: Product used for unknown indication
     Dosage: 2000 MG, EVERY 8H
     Route: 042
  40. TN UNSPECIFIED [Concomitant]
     Indication: Product used for unknown indication
     Dosage: 600 MG, EVERY 8H
     Route: 042
  41. ASPIRIN [Concomitant]
     Active Substance: ASPIRIN
     Indication: Product used for unknown indication
     Dosage: 81 MG, QD
     Route: 048
  42. TN UNSPECIFIED [Concomitant]
     Indication: Product used for unknown indication
     Dosage: 300 MG, BID
     Route: 048
  43. TN UNSPECIFIED [Concomitant]
     Indication: Product used for unknown indication
     Dosage: 150 MG, QD
     Route: 042
  44. TN UNSPECIFIED [Concomitant]
     Indication: Product used for unknown indication
     Dosage: 285 MG, BID
     Route: 042
  45. TN UNSPECIFIED [Concomitant]
     Indication: Product used for unknown indication
     Dosage: 2 MG, OTHER
     Route: 042

REACTIONS (4)
  - Escherichia sepsis [Recovering/Resolving]
  - Candida sepsis [Recovering/Resolving]
  - Abscess limb [Recovering/Resolving]
  - Cellulitis [Recovering/Resolving]

NARRATIVE: CASE EVENT DATE: 20201204
